FAERS Safety Report 18747228 (Version 2)
Quarter: 2021Q1

REPORT INFORMATION
  Report Type: Spontaneous
  Country: US (occurrence: US)
  Receive Date: 20210115
  Receipt Date: 20210201
  Transmission Date: 20210419
  Serious: No
  Sender: FDA-Public Use
  Company Number: US-MATRIXX INITIATIVES, INC.-2105391

PATIENT
  Age: 61 Year
  Sex: Female
  Weight: 63.64 kg

DRUGS (2)
  1. ZICAM NOS [Suspect]
     Active Substance: ECHINACEA ANGUSTIFOLIA\HOMEOPATHICS\ZINC ACETATE\ZINC GLUCONATE OR HOMEOPATHICS\ZINC ACETATE\ZINC GLUCONATE
  2. COLAZAL [Concomitant]
     Active Substance: BALSALAZIDE DISODIUM

REACTIONS (4)
  - Anosmia [Recovering/Resolving]
  - Hypersensitivity [None]
  - Ageusia [Recovering/Resolving]
  - Rhinorrhoea [None]
